FAERS Safety Report 9543947 (Version 1)
Quarter: 2013Q3

REPORT INFORMATION
  Report Type: Spontaneous
  Country: US (occurrence: US)
  Receive Date: 20130923
  Receipt Date: 20130923
  Transmission Date: 20140515
  Serious: Yes (Death, Life-Threatening)
  Sender: FDA-Public Use
  Company Number: US-ASTRAZENECA-2013SE70805

PATIENT
  Age: 55 Year
  Sex: Female

DRUGS (3)
  1. ANASTROZOLE [Suspect]
     Indication: BREAST CANCER STAGE IV
     Route: 048
  2. PARACETAMOL [Concomitant]
     Indication: ANALGESIC THERAPY
  3. FLUOXYMESTERONE [Concomitant]
     Indication: CANCER HORMONAL THERAPY

REACTIONS (3)
  - Posterior reversible encephalopathy syndrome [Fatal]
  - Cerebellar microhaemorrhage [Fatal]
  - Coma [Unknown]
